FAERS Safety Report 12351748 (Version 2)
Quarter: 2016Q3

REPORT INFORMATION
  Report Type: Spontaneous
  Country: US (occurrence: US)
  Receive Date: 20160510
  Receipt Date: 20160721
  Transmission Date: 20161109
  Serious: Yes (Other)
  Sender: FDA-Public Use
  Company Number: US-BRISTOL-MYERS SQUIBB COMPANY-BMS-2016-034051

PATIENT
  Sex: Female
  Weight: 68.27 kg

DRUGS (2)
  1. DEMADEX [Concomitant]
     Active Substance: TORSEMIDE
     Indication: PAIN
     Route: 065
  2. KENALOG-40 [Suspect]
     Active Substance: TRIAMCINOLONE ACETONIDE
     Indication: HYPERSENSITIVITY
     Route: 030
     Dates: start: 20160413, end: 20160413

REACTIONS (14)
  - Insomnia [Unknown]
  - Vision blurred [Recovering/Resolving]
  - Malaise [Unknown]
  - Fatigue [Unknown]
  - Renal injury [Unknown]
  - Pain in extremity [Unknown]
  - Hyperhidrosis [Unknown]
  - Alopecia [Unknown]
  - Hepatic enzyme increased [Unknown]
  - Thirst [Unknown]
  - Palpitations [Unknown]
  - Arthralgia [Unknown]
  - Abdominal discomfort [Unknown]
  - Nightmare [Unknown]
